FAERS Safety Report 25635094 (Version 1)
Quarter: 2025Q3

REPORT INFORMATION
  Report Type: Spontaneous
  Country: US (occurrence: US)
  Receive Date: 20250802
  Receipt Date: 20250802
  Transmission Date: 20251021
  Serious: Yes (Other)
  Sender: EPIC PHARM
  Company Number: US-EPICPHARMA-US-2025EPCSPO00860

PATIENT
  Age: 36 Year
  Sex: Female

DRUGS (14)
  1. DOXYCYCLINE HYCLATE [Suspect]
     Active Substance: DOXYCYCLINE HYCLATE
     Indication: Hidradenitis
     Route: 065
  2. RIFAMPIN [Suspect]
     Active Substance: RIFAMPIN
     Indication: Hidradenitis
     Route: 065
  3. CLINDAMYCIN HYDROCHLORIDE [Suspect]
     Active Substance: CLINDAMYCIN HYDROCHLORIDE
     Indication: Hidradenitis
     Route: 065
  4. SECUKINUMAB [Suspect]
     Active Substance: SECUKINUMAB
     Indication: Hidradenitis
     Route: 065
  5. ADALIMUMAB [Suspect]
     Active Substance: ADALIMUMAB
     Indication: Hidradenitis
     Route: 065
     Dates: start: 20161201, end: 20190205
  6. METHOTREXATE [Suspect]
     Active Substance: METHOTREXATE
     Indication: Hidradenitis
     Route: 065
     Dates: start: 20170613, end: 20191001
  7. INFLIXIMAB [Suspect]
     Active Substance: INFLIXIMAB
     Indication: Hidradenitis
     Route: 065
  8. TOFACITINIB [Suspect]
     Active Substance: TOFACITINIB
     Indication: Hidradenitis
     Route: 065
     Dates: start: 20200901, end: 20201101
  9. BIMEKIZUMAB [Suspect]
     Active Substance: BIMEKIZUMAB
     Indication: Hidradenitis
     Route: 065
  10. PREDNISONE [Suspect]
     Active Substance: PREDNISONE
     Indication: Hidradenitis
     Route: 065
     Dates: start: 20240101
  11. USTEKINUMAB [Suspect]
     Active Substance: USTEKINUMAB
     Indication: Hidradenitis
     Route: 065
     Dates: start: 20200301, end: 20201001
  12. SILIQ [Suspect]
     Active Substance: BRODALUMAB
     Indication: Hidradenitis
     Route: 065
     Dates: start: 20200601, end: 20201001
  13. CERTOLIZUMAB PEGOL [Suspect]
     Active Substance: CERTOLIZUMAB PEGOL
     Indication: Hidradenitis
     Route: 065
     Dates: start: 20201101, end: 20210901
  14. COSENTYX [Concomitant]
     Active Substance: SECUKINUMAB
     Indication: Product used for unknown indication
     Route: 065

REACTIONS (6)
  - Loss of personal independence in daily activities [Unknown]
  - Impaired quality of life [Unknown]
  - Hidradenitis [Unknown]
  - Condition aggravated [Unknown]
  - Pain [Unknown]
  - Drug ineffective for unapproved indication [Unknown]
